FAERS Safety Report 15979315 (Version 1)
Quarter: 2019Q1

REPORT INFORMATION
  Report Type: Spontaneous
  Country: DE (occurrence: CH)
  Receive Date: 20190219
  Receipt Date: 20190219
  Transmission Date: 20190418
  Serious: Yes (Hospitalization)
  Sender: FDA-Public Use
  Company Number: DE-NOVOPROD-208483

PATIENT
  Age: 53 Year
  Sex: Female

DRUGS (1)
  1. TRISEQUENS FORTE [Suspect]
     Active Substance: ESTRADIOL HEMIHYDRATE\NORETHINDRONE ACETATE
     Indication: OESTROGEN DEFICIENCY
     Dosage: 4 MG, UNK
     Route: 048
     Dates: start: 200011, end: 200101

REACTIONS (3)
  - Cerebrovascular accident [Unknown]
  - Cerebrovascular disorder [Unknown]
  - Hemiplegia [Unknown]

NARRATIVE: CASE EVENT DATE: 20010105
